FAERS Safety Report 18321781 (Version 1)
Quarter: 2020Q3

REPORT INFORMATION
  Report Type: Spontaneous
  Country: US (occurrence: US)
  Receive Date: 20200929
  Receipt Date: 20200929
  Transmission Date: 20201103
  Serious: Yes (Hospitalization, Other)
  Sender: FDA-Public Use
  Company Number: US-ALVOGEN-2020-ALVOGEN-114717

PATIENT
  Sex: Male

DRUGS (1)
  1. FENTANYL. [Suspect]
     Active Substance: FENTANYL
     Indication: PRODUCT USED FOR UNKNOWN INDICATION

REACTIONS (12)
  - Osteomyelitis [Unknown]
  - Intentional overdose [Unknown]
  - Drug use disorder [Unknown]
  - Bacillus bacteraemia [Unknown]
  - Drug abuse [Unknown]
  - Pathogen resistance [Unknown]
  - Staphylococcal infection [Unknown]
  - Cellulitis [Unknown]
  - Tenosynovitis [Unknown]
  - Staphylococcal infection [Unknown]
  - Alpha haemolytic streptococcal infection [Unknown]
  - Abscess limb [Unknown]

NARRATIVE: CASE EVENT DATE: 2007
